FAERS Safety Report 4291152-5 (Version None)
Quarter: 2004Q1

REPORT INFORMATION
  Report Type: 
  Country: None (occurrence: None)
  Receive Date: 20040211
  Receipt Date: 20040203
  Transmission Date: 20041129
  Serious: Yes (Other)
  Sender: FDA-Public Use
  Company Number: 200411564GDDC

PATIENT
  Sex: Female
  Weight: 63 kg

DRUGS (9)
  1. FEXOFENADINE HCL [Suspect]
     Indication: HYPERSENSITIVITY
     Route: 048
     Dates: start: 20031103, end: 20031204
  2. OTHER RESPIRATORY SYSTEM PRODUCTS [Suspect]
     Indication: CHRONIC OBSTRUCTIVE AIRWAYS DISEASE
     Route: 055
     Dates: start: 20031217
  3. PAROXETINE [Concomitant]
     Indication: DEPRESSION
     Route: 048
     Dates: start: 19990701
  4. PROPRANOLOL [Concomitant]
     Indication: ANXIETY
     Route: 048
     Dates: start: 20021201
  5. TRAMADOL HCL [Concomitant]
     Indication: PAIN
     Route: 048
     Dates: start: 20010401
  6. RIZATRIPTAN [Concomitant]
     Indication: MIGRAINE
     Route: 048
     Dates: start: 20030701
  7. SEREVENT [Concomitant]
     Indication: ASTHMA
     Route: 055
     Dates: start: 20031017, end: 20031201
  8. SYMBICORT [Concomitant]
     Indication: ASTHMA
     Dosage: DOSE: 200/6
     Route: 055
     Dates: start: 20031201
  9. TERBUTALINE SULFATE [Concomitant]
     Indication: ASTHMA
     Route: 055
     Dates: start: 20031201

REACTIONS (2)
  - MALAISE [None]
  - OESOPHAGEAL SPASM [None]
